FAERS Safety Report 12232177 (Version 4)
Quarter: 2016Q2

REPORT INFORMATION
  Report Type: Spontaneous
  Country: US (occurrence: US)
  Receive Date: 20160401
  Receipt Date: 20160627
  Transmission Date: 20160815
  Serious: Yes (Other)
  Sender: FDA-Public Use
  Company Number: US-TEVA-648606USA

PATIENT
  Age: 82 Year
  Sex: Female

DRUGS (5)
  1. FLECAINIDE [Interacting]
     Active Substance: FLECAINIDE
  2. METOPROLOL TARTRATE. [Concomitant]
     Active Substance: METOPROLOL TARTRATE
  3. AMIODARONE [Suspect]
     Active Substance: AMIODARONE
  4. CANDESARTAN 32MG HYDROCHLOROTHIAZIDE 12.5 MG [Concomitant]
     Dosage: CANDESARTAN 32MG HYDROCHLOROTHIAZIDE 12.5 MG DAILY
  5. DOXYCYCLINE. [Concomitant]
     Active Substance: DOXYCYCLINE
     Indication: LOCALISED INFECTION

REACTIONS (9)
  - Toxicity to various agents [Unknown]
  - Nausea [Recovering/Resolving]
  - Device capturing issue [Recovering/Resolving]
  - Acute kidney injury [Recovered/Resolved]
  - Vomiting [Recovering/Resolving]
  - Electrocardiogram QRS complex prolonged [Recovering/Resolving]
  - Ventricular arrhythmia [Recovering/Resolving]
  - Metabolic acidosis [Recovered/Resolved]
  - Drug interaction [Unknown]
